FAERS Safety Report 20231493 (Version 1)
Quarter: 2021Q4

REPORT INFORMATION
  Report Type: Spontaneous
  Country: US (occurrence: US)
  Receive Date: 20211227
  Receipt Date: 20211227
  Transmission Date: 20220303
  Serious: No
  Sender: FDA-Public Use
  Company Number: US-BAUSCH-BL-2021-042140

PATIENT
  Age: 26 Year
  Sex: Male

DRUGS (1)
  1. LIBRIUM [Suspect]
     Active Substance: CHLORDIAZEPOXIDE HYDROCHLORIDE
     Indication: Product used for unknown indication
     Route: 065

REACTIONS (1)
  - Skin exfoliation [Unknown]
